FAERS Safety Report 25924482 (Version 1)
Quarter: 2025Q4

REPORT INFORMATION
  Report Type: Spontaneous
  Country: US (occurrence: None)
  Receive Date: 20251013
  Receipt Date: 20251013
  Transmission Date: 20260117
  Serious: Yes (unspecified)
  Sender: FDA-CTU
  Company Number: None

PATIENT
  Age: 45 Year
  Sex: Male

DRUGS (1)
  1. VUITY [Suspect]
     Active Substance: PILOCARPINE HYDROCHLORIDE
     Indication: Vision blurred
     Dosage: OTHER STRENGTH : 1.25%;?OTHER QUANTITY : 1GTT;?FREQUENCY : DAILY;?
     Route: 047
     Dates: start: 20250922, end: 20250924

REACTIONS (7)
  - Ocular hyperaemia [None]
  - Eye irritation [None]
  - Headache [None]
  - Retinal detachment [None]
  - Retinal tear [None]
  - Vitreous haemorrhage [None]
  - Vitreous floaters [None]

NARRATIVE: CASE EVENT DATE: 20251007
